FAERS Safety Report 6366625-1 (Version None)
Quarter: 2009Q3

REPORT INFORMATION
  Report Type: 
  Country: None (occurrence: None)
  Receive Date: 20090921
  Receipt Date: 20090917
  Transmission Date: 20100115
  Serious: Yes (Death, Life-Threatening)
  Sender: FDA-Public Use
  Company Number: ZA-ASTRAZENECA-2009SE01805

PATIENT
  Age: 17803 Day
  Sex: Female

DRUGS (9)
  1. DIPRIVAN [Suspect]
     Indication: SEDATIVE THERAPY
     Route: 042
  2. CARLOC [Concomitant]
  3. COVERSYL PLUS [Concomitant]
  4. MAXIPIME [Concomitant]
  5. PHENYTOIN SODIUM CAP [Concomitant]
  6. PANADO [Concomitant]
  7. CLEXANE [Concomitant]
  8. ADALAT CC [Concomitant]
  9. DIFLUCAN [Concomitant]

REACTIONS (3)
  - CEREBRAL INFARCTION [None]
  - COMA [None]
  - RESPIRATORY ARREST [None]
